FAERS Safety Report 5831062-2 (Version None)
Quarter: 2008Q3

REPORT INFORMATION
  Report Type: 
  Country: None (occurrence: None)
  Receive Date: 20080801
  Receipt Date: 20080324
  Transmission Date: 20090109
  Serious: No
  Sender: FDA-Public Use
  Company Number: US-BRISTOL-MYERS SQUIBB COMPANY-14124820

PATIENT
  Age: 33 Year
  Sex: Female
  Weight: 113 kg

DRUGS (2)
  1. COUMADIN [Suspect]
     Indication: PULMONARY EMBOLISM
     Dosage: 1 DOSAGE FORM = 5-10 MG ON ALTERNATING DAYS.
     Dates: start: 20080113
  2. TYLENOL [Concomitant]
     Indication: ARTHRITIS

REACTIONS (1)
  - PARAESTHESIA [None]
